FAERS Safety Report 6300566-0 (Version None)
Quarter: 2009Q3

REPORT INFORMATION
  Report Type: 
  Country: None (occurrence: None)
  Receive Date: 20090806
  Receipt Date: 20090320
  Transmission Date: 20100115
  Serious: No
  Sender: FDA-Public Use
  Company Number: US-ABBOTT-09P-163-0564151-00

PATIENT
  Sex: Female
  Weight: 114.41 kg

DRUGS (2)
  1. DEPAKOTE ER [Suspect]
     Indication: MANIA
     Dosage: 250MG, IN AM,1400,+ 180 AND 500MG QHS
     Route: 048
     Dates: start: 20090223
  2. DEPAKOTE ER [Suspect]
     Indication: BIPOLAR DISORDER

REACTIONS (3)
  - IRRITABILITY [None]
  - MEDICATION RESIDUE [None]
  - TREMOR [None]
